FAERS Safety Report 8158035-1 (Version None)
Quarter: 2012Q1

REPORT INFORMATION
  Report Type: 
  Country: None (occurrence: None)
  Receive Date: 20120222
  Receipt Date: 20120215
  Transmission Date: 20120608
  Serious: Yes (Hospitalization)
  Sender: FDA-Public Use
  Company Number: PHHY2011JP80524

PATIENT
  Sex: Male

DRUGS (9)
  1. DESFERAL [Concomitant]
     Indication: IRON OVERLOAD
     Dosage: 1000 MG, UNK
     Route: 030
     Dates: start: 20070329, end: 20070628
  2. HACHIMIJIO-GAN [Concomitant]
     Indication: PROPHYLAXIS
     Dosage: 3 DF
     Route: 048
     Dates: start: 20070913
  3. ALFAROL [Concomitant]
     Dosage: 1 UG, UNK
     Route: 048
     Dates: start: 20091203
  4. ENTOMOL [Concomitant]
     Indication: PROPHYLAXIS
     Dosage: 3 G,
     Route: 048
     Dates: start: 20070601
  5. ESPO [Concomitant]
     Indication: PROPHYLAXIS
     Dosage: 12000 IU, UNK
     Route: 058
     Dates: start: 20091001, end: 20100625
  6. GLAKAY [Concomitant]
     Indication: MYELODYSPLASTIC SYNDROME
     Dosage: 45 MG, UNK
     Route: 048
     Dates: start: 20091015
  7. EXJADE [Suspect]
     Indication: IRON OVERLOAD
     Dosage: 750 MG, DAILY
     Route: 048
     Dates: start: 20100218, end: 20100302
  8. PRIMOBOLAN-DEPOT INJ [Concomitant]
     Dosage: 15 MG, UNK
     Route: 048
     Dates: start: 20070330
  9. SULFAMETHOXAZOLE [Concomitant]
     Indication: PROPHYLAXIS
     Dosage: 1 DF, UNK
     Route: 048
     Dates: start: 20070119

REACTIONS (2)
  - PYREXIA [None]
  - ECZEMA [None]
